FAERS Safety Report 8331935-5 (Version None)
Quarter: 2012Q2

REPORT INFORMATION
  Report Type: 
  Country: None (occurrence: None)
  Receive Date: 20120502
  Receipt Date: 20120420
  Transmission Date: 20120825
  Serious: Yes (Hospitalization)
  Sender: FDA-Public Use
  Company Number: CA-ELI_LILLY_AND_COMPANY-CA201203001764

PATIENT
  Age: 86 Year
  Sex: Female
  Weight: 38.5 kg

DRUGS (23)
  1. CALCIUM [Concomitant]
  2. TRIDURAL [Concomitant]
     Dosage: 200 MG, QD
     Route: 048
  3. APO-FERROUS SULFATE [Concomitant]
     Dosage: 300 MG, QD
     Route: 048
  4. ESCITALOPRAM [Concomitant]
     Dosage: 20 MG, QD
     Route: 048
  5. SPIRIVA [Concomitant]
     Dosage: 18 UG, QD
     Route: 055
  6. SOFLAX [Concomitant]
     Dosage: 200 MG, BID
     Route: 048
  7. FORTEO [Suspect]
     Indication: OSTEOPOROSIS
     Dosage: 20 UG, QD
     Route: 058
     Dates: end: 20120205
  8. FORTEO [Suspect]
     Dosage: 20 UG, QD
     Route: 058
     Dates: start: 20120212
  9. VITAMIN D [Concomitant]
     Dosage: 2000 IU, QD
     Route: 048
  10. APO-SALVENT CFC FREE [Concomitant]
     Dosage: 2 DF, EVERY 4 HRS
     Route: 055
  11. SENOKOT [Concomitant]
     Dosage: 17.2 MG, EACH EVENING
     Route: 048
  12. DILANTIN [Concomitant]
     Dosage: 100 MG, BID
     Route: 048
  13. ADVAIR DISKUS 100/50 [Concomitant]
     Dosage: UNK, BID
     Route: 055
  14. APO-ACETAMINOPHEN [Concomitant]
     Dosage: 1000 MG, TID
     Route: 048
  15. GENTEAL [Concomitant]
     Dosage: 3 MG, QD
     Route: 047
  16. PREVACID [Concomitant]
     Dosage: 30 MG, QD
     Route: 048
  17. FORTEO [Suspect]
     Dosage: 20 UG, QD
     Route: 058
  18. EXTRA STRENGTH TYLENOL [Concomitant]
  19. GLYCERIN [Concomitant]
     Dosage: 1 DF, PRN
     Route: 054
  20. MEDROL [Concomitant]
     Dosage: 4 MG, QD
     Route: 048
  21. SYNTHROID [Concomitant]
  22. LEVOTHYROXINE SODIUM [Concomitant]
     Dosage: 0.05 MG, EACH MORNING
     Route: 048
  23. VITAMIN B-12 [Concomitant]
     Dosage: 1000 UG, QD
     Route: 060

REACTIONS (2)
  - UNRESPONSIVE TO STIMULI [None]
  - PETIT MAL EPILEPSY [None]
